FAERS Safety Report 24864957 (Version 1)
Quarter: 2025Q1

REPORT INFORMATION
  Report Type: Spontaneous
  Country: GB (occurrence: GB)
  Receive Date: 20250121
  Receipt Date: 20250121
  Transmission Date: 20250408
  Serious: Yes (Hospitalization, Other)
  Sender: INVENTIA HEALTHCARE LTD
  Company Number: GB-IHL-000639

PATIENT
  Age: 14 Year
  Sex: Male

DRUGS (1)
  1. FLUOXETINE HYDROCHLORIDE [Suspect]
     Active Substance: FLUOXETINE HYDROCHLORIDE
     Indication: Depression
     Route: 065

REACTIONS (7)
  - Rhabdomyolysis [Recovering/Resolving]
  - Hypokalaemia [Unknown]
  - Generalised tonic-clonic seizure [Recovered/Resolved]
  - Serotonin syndrome [Recovering/Resolving]
  - Vomiting [Unknown]
  - Suicide attempt [Unknown]
  - Overdose [Unknown]
